FAERS Safety Report 9175252 (Version 1)
Quarter: 2013Q1

REPORT INFORMATION
  Report Type: Spontaneous
  Country: US (occurrence: US)
  Receive Date: 20130320
  Receipt Date: 20130320
  Transmission Date: 20140127
  Serious: No
  Sender: FDA-Public Use
  Company Number: US-ASTRAZENECA-2013SE14467

PATIENT
  Age: 63 Year
  Sex: Female
  Weight: 88 kg

DRUGS (7)
  1. VIMOVO [Suspect]
     Route: 048
  2. METOPROLOL TARTRATE [Suspect]
     Route: 048
  3. AMPYRA [Suspect]
     Indication: GAIT DISTURBANCE
     Route: 048
     Dates: start: 201301, end: 201301
  4. AMPYRA [Suspect]
     Indication: GAIT DISTURBANCE
     Route: 048
     Dates: start: 201301, end: 201301
  5. ALENDRONATE SODIUM [Concomitant]
  6. COPAXONE [Concomitant]
  7. LOSARTAN [Concomitant]

REACTIONS (4)
  - Neuropathy peripheral [Recovered/Resolved]
  - Abdominal discomfort [Not Recovered/Not Resolved]
  - Diarrhoea [Recovered/Resolved]
  - Rash papular [Recovered/Resolved]
